FAERS Safety Report 6856671-3 (Version None)
Quarter: 2010Q3

REPORT INFORMATION
  Report Type: 
  Country: None (occurrence: None)
  Receive Date: 20100719
  Receipt Date: 20100715
  Transmission Date: 20110219
  Serious: Yes (Hospitalization)
  Sender: FDA-Public Use
  Company Number: US-GENZYME-CERZ-1001402

PATIENT

DRUGS (1)
  1. CEREZYME [Suspect]
     Indication: GAUCHER'S DISEASE
     Dosage: 5600 U, Q2W
     Route: 042
     Dates: start: 19920101

REACTIONS (5)
  - ASTHENIA [None]
  - BONE PAIN [None]
  - DYSPNOEA [None]
  - GASTRITIS [None]
  - NAUSEA [None]
